FAERS Safety Report 9460286 (Version 1)
Quarter: 2013Q3

REPORT INFORMATION
  Report Type: Spontaneous
  Country: US (occurrence: US)
  Receive Date: 20130815
  Receipt Date: 20130815
  Transmission Date: 20140515
  Serious: Yes (Hospitalization, Other)
  Sender: FDA-Public Use
  Company Number: US-INCYTE CORPORATION-2013IN001320

PATIENT
  Age: 53 Year
  Sex: Female
  Weight: 88.89 kg

DRUGS (7)
  1. JAKAFI [Suspect]
     Indication: MYELOFIBROSIS
     Dosage: 20 MG, QD
     Route: 048
     Dates: start: 20130214, end: 2013
  2. JAKAFI [Suspect]
     Dosage: 15 MG, BID
     Route: 048
     Dates: start: 20130618, end: 20130719
  3. HUMALOG [Concomitant]
  4. METFORMIN [Concomitant]
  5. IRON [Concomitant]
  6. LANTUS [Concomitant]
  7. OXYCODONE [Concomitant]

REACTIONS (2)
  - Splenic infarction [Unknown]
  - Anaemia [Unknown]
